FAERS Safety Report 7021287-5 (Version None)
Quarter: 2010Q3

REPORT INFORMATION
  Report Type: 
  Country: None (occurrence: None)
  Receive Date: 20100927
  Receipt Date: 20100910
  Transmission Date: 20110219
  Serious: Yes (Other)
  Sender: FDA-Public Use
  Company Number: IPCA201009-000261

PATIENT

DRUGS (1)
  1. ATENOLOL [Suspect]
     Dosage: 50 MG TABLETS

REACTIONS (2)
  - ATRIAL FIBRILLATION [None]
  - MIGRAINE [None]
